FAERS Safety Report 5383128-1 (Version None)
Quarter: 2007Q3

REPORT INFORMATION
  Report Type: 
  Country: None (occurrence: None)
  Receive Date: 20070710
  Receipt Date: 20070625
  Transmission Date: 20080115
  Serious: Yes (Life-Threatening)
  Sender: FDA-Public Use
  Company Number: FR-ROCHE-504254

PATIENT
  Age: 65 Year
  Sex: Male
  Weight: 64 kg

DRUGS (13)
  1. RIVOTRIL [Suspect]
     Indication: DRUG USE FOR UNKNOWN INDICATION
     Route: 065
  2. NEURONTIN [Suspect]
     Indication: DRUG USE FOR UNKNOWN INDICATION
     Route: 065
  3. SKENAN [Suspect]
     Indication: DRUG USE FOR UNKNOWN INDICATION
     Route: 065
  4. THERALENE [Suspect]
     Indication: DRUG USE FOR UNKNOWN INDICATION
     Route: 048
     Dates: start: 20000615
  5. NOCTRAN [Suspect]
     Indication: DRUG USE FOR UNKNOWN INDICATION
     Route: 048
  6. MIMPARA [Concomitant]
     Route: 048
     Dates: start: 20060907
  7. TENORMIN [Concomitant]
     Indication: HYPERTENSION
     Route: 048
     Dates: start: 20000101
  8. PLAVIX [Concomitant]
     Dates: start: 19990101
  9. KARDEGIC [Concomitant]
     Dates: start: 19990101
  10. METEOSPASMYL [Concomitant]
     Dates: start: 20061101
  11. DAFALGAN [Concomitant]
     Dates: start: 20040301
  12. NEXIUM [Concomitant]
     Dates: start: 20051001
  13. VASTAREL [Concomitant]
     Dates: start: 20051001

REACTIONS (6)
  - COMA [None]
  - ENCEPHALOPATHY [None]
  - HYPOTENSION [None]
  - HYPOXIA [None]
  - STATUS EPILEPTICUS [None]
  - STUPOR [None]
